FAERS Safety Report 12220892 (Version 8)
Quarter: 2017Q1

REPORT INFORMATION
  Report Type: Spontaneous
  Country: US (occurrence: US)
  Receive Date: 20160330
  Receipt Date: 20170105
  Transmission Date: 20170428
  Serious: No
  Sender: FDA-Public Use
  Company Number: US-PFIZER INC-2016169720

PATIENT
  Age: 81 Year
  Sex: Female
  Weight: 58 kg

DRUGS (14)
  1. IBRANCE [Suspect]
     Active Substance: PALBOCICLIB
     Dosage: 100 MG, CYCLIC (DAILY DAYS 1-21 OF 28 DAYS, D1- D21 Q28 D)
     Route: 048
     Dates: start: 20150813, end: 20161222
  2. HYDROCHLOROTHIAZIDE. [Concomitant]
     Active Substance: HYDROCHLOROTHIAZIDE
     Dosage: 25 MG, UNK
  3. IBRANCE [Suspect]
     Active Substance: PALBOCICLIB
     Indication: BREAST CANCER METASTATIC
     Dosage: 125 MG, CYCLIC (DAY 1-21 Q28 DAYS)
     Route: 048
     Dates: start: 20150813
  4. IBRANCE [Suspect]
     Active Substance: PALBOCICLIB
     Dosage: 100 MG, CYCLIC (DAY 1-21 Q28 DAYS)
     Route: 048
  5. TRAMADOL. [Concomitant]
     Active Substance: TRAMADOL
     Dosage: 50 MG, UNK (EVERY 4-6 HOURS)
  6. FASLODEX [Concomitant]
     Active Substance: FULVESTRANT
     Indication: LEUKOPENIA
     Dosage: 250 MG, UNK
  7. LEVOTHYROXINE. [Concomitant]
     Active Substance: LEVOTHYROXINE
     Dosage: 50 UG, UNK
  8. XGEVA [Concomitant]
     Active Substance: DENOSUMAB
     Dosage: 120 MG, UNK
  9. IBRANCE [Suspect]
     Active Substance: PALBOCICLIB
     Dosage: 100 MG, UNK
  10. NEXIUM [Concomitant]
     Active Substance: ESOMEPRAZOLE MAGNESIUM
     Dosage: 40 MG, UNK
  11. IBRANCE [Suspect]
     Active Substance: PALBOCICLIB
     Dosage: 125 MG, CYCLIC (DAY 1-21 Q28 DAYS)
     Route: 048
  12. IBRANCE [Suspect]
     Active Substance: PALBOCICLIB
     Dosage: 100 MG, CYCLIC (DAYS 1-21 Q 28 DAYS)
     Route: 048
     Dates: start: 20150813, end: 20160816
  13. CRESTOR [Concomitant]
     Active Substance: ROSUVASTATIN CALCIUM
     Dosage: 40 MG, UNK
  14. MOEXIPRIL [Concomitant]
     Active Substance: MOEXIPRIL HYDROCHLORIDE
     Dosage: 15 MG, UNK

REACTIONS (23)
  - Neoplasm progression [Unknown]
  - Rhinorrhoea [Unknown]
  - Decreased appetite [Not Recovered/Not Resolved]
  - Palpitations [Unknown]
  - Toothache [Unknown]
  - Nausea [Unknown]
  - Pain in jaw [Unknown]
  - Dyspnoea [Unknown]
  - Hypertension [Unknown]
  - Nervousness [Unknown]
  - Back pain [Unknown]
  - Hot flush [Not Recovered/Not Resolved]
  - Localised infection [Unknown]
  - Fatigue [Unknown]
  - Constipation [Unknown]
  - Pollakiuria [Unknown]
  - Wheezing [Unknown]
  - Gait disturbance [Unknown]
  - Dry mouth [Unknown]
  - White blood cell count decreased [Unknown]
  - Dysgeusia [Unknown]
  - Insomnia [Unknown]
  - Dizziness [Unknown]
